FAERS Safety Report 24295057 (Version 1)
Quarter: 2024Q3

REPORT INFORMATION
  Report Type: Spontaneous
  Country: PT (occurrence: PT)
  Receive Date: 20240907
  Receipt Date: 20240907
  Transmission Date: 20241016
  Serious: Yes (Hospitalization)
  Sender: AUROBINDO
  Company Number: PT-AUROBINDO-AUR-APL-2024-042803

PATIENT
  Age: 70 Year
  Sex: Male

DRUGS (3)
  1. AMOXICILLIN\CLAVULANIC ACID [Suspect]
     Active Substance: AMOXICILLIN\CLAVULANIC ACID
     Indication: Omphalitis
     Dosage: UNK, 875/125 MILLIGRAM TWO TIMES A DAY
     Route: 048
  2. FLUCLOXACILLIN [Suspect]
     Active Substance: FLUCLOXACILLIN
     Indication: Omphalitis
     Dosage: 500 MILLIGRAM, 3 TIMES A DAY FOR 16 DAYS
     Route: 065
  3. FUSIDIC ACID [Suspect]
     Active Substance: FUSIDIC ACID
     Indication: Omphalitis
     Dosage: 20 MILLIGRAM PER GRAM FOR 7 DAY
     Route: 061

REACTIONS (1)
  - Drug ineffective [Unknown]
